FAERS Safety Report 23353167 (Version 1)
Quarter: 2023Q4

REPORT INFORMATION
  Report Type: Spontaneous
  Country: JP (occurrence: JP)
  Receive Date: 20231230
  Receipt Date: 20231230
  Transmission Date: 20240109
  Serious: Yes (Hospitalization, Other)
  Sender: FDA-Public Use
  Company Number: JP-BAXTER-2023BAX037466AA

PATIENT
  Age: 9 Decade
  Sex: Male

DRUGS (2)
  1. REGUNEAL LCA [Suspect]
     Active Substance: CALCIUM CHLORIDE\DEXTROSE MONOHYDRATE\HYDROCHLORIC ACID\MAGNESIUM CHLORIDE\SODIUM BICARBONATE\SODIUM
     Indication: Peritoneal dialysis
     Dosage: 2 BAGS OF 1500 (UNIT NOT REPORTED) DAILY
     Route: 033
     Dates: start: 20211026
  2. REGUNEAL LCA [Suspect]
     Active Substance: CALCIUM CHLORIDE\DEXTROSE MONOHYDRATE\HYDROCHLORIC ACID\MAGNESIUM CHLORIDE\SODIUM BICARBONATE\SODIUM
     Indication: Peritoneal dialysis
     Dosage: 1 BAG OF 1500 (UNIT NOT REPORTED) DAILY
     Route: 033
     Dates: start: 20211026

REACTIONS (7)
  - Cardiac failure [Recovered/Resolved]
  - Physical deconditioning [Unknown]
  - Dementia [Unknown]
  - Disease progression [Unknown]
  - Urine output increased [Unknown]
  - Salt intoxication [Unknown]
  - Cognitive disorder [Unknown]

NARRATIVE: CASE EVENT DATE: 20231204
